FAERS Safety Report 6219643-8 (Version None)
Quarter: 2009Q2

REPORT INFORMATION
  Report Type: 
  Country: None (occurrence: None)
  Receive Date: 20090609
  Receipt Date: 20090605
  Transmission Date: 20091009
  Serious: Yes (Death, Other)
  Sender: FDA-Public Use
  Company Number: US-AVENTIS-200914836US

PATIENT
  Sex: Male

DRUGS (2)
  1. LOVENOX [Suspect]
     Dates: start: 20071010, end: 20071011
  2. LOVENOX [Suspect]
     Dates: start: 20071011, end: 20071001

REACTIONS (5)
  - DEATH [None]
  - PAIN [None]
  - PHLEBITIS [None]
  - RENAL FAILURE [None]
  - RETROPERITONEAL HAEMORRHAGE [None]
